FAERS Safety Report 17153543 (Version 1)
Quarter: 2019Q4

REPORT INFORMATION
  Report Type: Spontaneous
  Country: PL (occurrence: PL)
  Receive Date: 20191213
  Receipt Date: 20191213
  Transmission Date: 20200122
  Serious: Yes (Other)
  Sender: FDA-Public Use
  Company Number: NVSC2019PL063919

PATIENT
  Sex: Female

DRUGS (2)
  1. ZOLEDRONIC ACID [Suspect]
     Active Substance: ZOLEDRONIC ACID
     Indication: BREAST CANCER
     Dosage: UNK
     Route: 065
     Dates: end: 201705
  2. TAMOXIFEN [Suspect]
     Active Substance: TAMOXIFEN
     Indication: BREAST CANCER
     Dosage: UNK
     Route: 065
     Dates: end: 201705

REACTIONS (19)
  - Malignant neoplasm progression [Recovered/Resolved]
  - General physical health deterioration [Recovered/Resolved]
  - Carbohydrate antigen 15-3 increased [Unknown]
  - Metastases to bone marrow [Recovering/Resolving]
  - Breast cancer [Recovered/Resolved]
  - Weight decreased [Unknown]
  - Lung neoplasm malignant [Recovered/Resolved]
  - Adenocarcinoma [Unknown]
  - Thrombocytopenia [Unknown]
  - Arthralgia [Recovered/Resolved]
  - Osteolysis [Unknown]
  - Bone lesion [Recovering/Resolving]
  - Pain [Recovered/Resolved]
  - Anaemia [Recovered/Resolved]
  - Pleural effusion [Recovering/Resolving]
  - Asthenia [Recovering/Resolving]
  - Dyspnoea [Recovered/Resolved]
  - Bone pain [Recovered/Resolved]
  - Gait disturbance [Recovered/Resolved]
